FAERS Safety Report 10561121 (Version 3)
Quarter: 2015Q1

REPORT INFORMATION
  Report Type: Report from Study
  Country: US (occurrence: US)
  Receive Date: 20141103
  Receipt Date: 20150305
  Transmission Date: 20150720
  Serious: Yes (Hospitalization)
  Sender: FDA-Public Use
  Company Number: US-SA-2014SA145972

PATIENT
  Age: 48 Year
  Sex: Female

DRUGS (1)
  1. AUBAGIO [Suspect]
     Active Substance: TERIFLUNOMIDE
     Indication: MULTIPLE SCLEROSIS
     Route: 048
     Dates: start: 20140920

REACTIONS (15)
  - Rash [Unknown]
  - Skin burning sensation [Unknown]
  - Neck surgery [Unknown]
  - Headache [Unknown]
  - Hot flush [Unknown]
  - Inappropriate schedule of drug administration [Unknown]
  - Eye irritation [Unknown]
  - Fatigue [Unknown]
  - Influenza like illness [Unknown]
  - Hepatic enzyme increased [Unknown]
  - Unevaluable event [Unknown]
  - Diarrhoea [Unknown]
  - Alopecia [Unknown]
  - Pain [Unknown]
  - Nervousness [Unknown]

NARRATIVE: CASE EVENT DATE: 20141014
